FAERS Safety Report 8007706-6 (Version None)
Quarter: 2011Q4

REPORT INFORMATION
  Report Type: 
  Country: None (occurrence: None)
  Receive Date: 20111227
  Receipt Date: 20111118
  Transmission Date: 20120403
  Serious: No
  Sender: FDA-Public Use
  Company Number: US-ABBOTT-11P-163-0875796-00

PATIENT
  Sex: Male
  Weight: 92.616 kg

DRUGS (13)
  1. DOXAZOXIN [Concomitant]
     Indication: PROSTATOMEGALY
  2. LUPRON DEPOT [Suspect]
     Indication: PROSTATE CANCER
     Dates: start: 20111019
  3. LICINOPRIL [Concomitant]
     Indication: HYPERTENSION
  4. KLONOPIN [Concomitant]
     Indication: PANIC ATTACK
  5. FOLIC ACID [Concomitant]
     Indication: FOLATE DEFICIENCY
  6. PROTONIX [Concomitant]
     Indication: GASTROOESOPHAGEAL REFLUX DISEASE
  7. NEURONTIN [Concomitant]
     Indication: ANXIETY
  8. ZOCOR [Concomitant]
     Indication: HYPERTENSION
  9. ASPIRIN [Concomitant]
     Indication: CARDIOVASCULAR EVENT PROPHYLAXIS
  10. MULTI-VITAMIN [Concomitant]
     Indication: MULTI-VITAMIN DEFICIENCY
  11. CELEXA [Concomitant]
     Indication: DEPRESSION
  12. NORVASC [Concomitant]
     Indication: HYPERTENSION
  13. ATENOLOL [Concomitant]
     Indication: HYPERTENSION

REACTIONS (3)
  - HOT FLUSH [None]
  - NAUSEA [None]
  - HYPOAESTHESIA [None]
